FAERS Safety Report 21188748 (Version 4)
Quarter: 2022Q4

REPORT INFORMATION
  Report Type: Report from Study
  Country: BR (occurrence: BR)
  Receive Date: 20220809
  Receipt Date: 20221005
  Transmission Date: 20230113
  Serious: Yes (Hospitalization, Other)
  Sender: FDA-Public Use
  Company Number: BR-JNJFOC-20220803936

PATIENT
  Age: 6 Decade
  Sex: Female

DRUGS (5)
  1. JANSSEN COVID-19 VACCINE [Suspect]
     Active Substance: AD26.COV2.S
     Indication: COVID-19 prophylaxis
     Dosage: DOSE 2
     Route: 065
     Dates: start: 20220818, end: 20220818
  2. SIMPONI [Suspect]
     Active Substance: GOLIMUMAB
     Indication: Ankylosing spondylitis
     Route: 058
     Dates: start: 20180604
  3. OMEPRAZOLE [Concomitant]
     Active Substance: OMEPRAZOLE
     Indication: Product used for unknown indication
     Route: 065
  4. DIAZEPAM [Concomitant]
     Active Substance: DIAZEPAM
     Indication: Product used for unknown indication
     Route: 065
  5. SIMVASTATIN [Concomitant]
     Active Substance: SIMVASTATIN
     Indication: Product used for unknown indication
     Route: 065

REACTIONS (18)
  - Cerebrovascular accident [Unknown]
  - Hemiparesis [Unknown]
  - Ischaemic stroke [Recovered/Resolved]
  - Spinal operation [Unknown]
  - Vascular pseudoaneurysm [Unknown]
  - COVID-19 [Unknown]
  - Tonsillitis [Unknown]
  - Pain [Not Recovered/Not Resolved]
  - Influenza [Unknown]
  - Anaemia [Unknown]
  - Urinary tract infection [Unknown]
  - Joint swelling [Not Recovered/Not Resolved]
  - Anxiety [Unknown]
  - Depression [Unknown]
  - Swelling [Unknown]
  - Pain in jaw [Unknown]
  - Wound [Unknown]
  - Emotional distress [Unknown]

NARRATIVE: CASE EVENT DATE: 20210801
